FAERS Safety Report 8396722-0 (Version None)
Quarter: 2012Q2

REPORT INFORMATION
  Report Type: 
  Country: None (occurrence: None)
  Receive Date: 20120530
  Receipt Date: 20120523
  Transmission Date: 20120825
  Serious: Yes (Death, Hospitalization, Other)
  Sender: FDA-Public Use
  Company Number: JP-PFIZER INC-2012125108

PATIENT
  Age: 78 Year
  Sex: Male

DRUGS (4)
  1. CISPLATIN [Suspect]
     Indication: RENAL CANCER
     Dosage: 220 MG, WEEKLY
  2. ADRIAMYCIN PFS [Suspect]
     Indication: RENAL CANCER
     Dosage: 90 MG, WEEKLY
  3. METHOTREXATE SODIUM [Suspect]
     Indication: RENAL CANCER
     Dosage: 270 MG, WEEKLY
     Route: 042
  4. VINBLASTINE SULFATE [Suspect]
     Indication: RENAL CANCER
     Dosage: 30 MG, WEEKLY

REACTIONS (3)
  - SEPSIS [None]
  - MYELODYSPLASTIC SYNDROME [None]
  - BRONCHOPULMONARY ASPERGILLOSIS [None]
